FAERS Safety Report 8126003-1 (Version None)
Quarter: 2012Q1

REPORT INFORMATION
  Report Type: 
  Country: None (occurrence: None)
  Receive Date: 20120209
  Receipt Date: 20120131
  Transmission Date: 20120608
  Serious: Yes (Life-Threatening, Other)
  Sender: FDA-Public Use
  Company Number: NL-ROCHE-1017916

PATIENT
  Sex: Male
  Weight: 80 kg

DRUGS (12)
  1. MYCOPHENOLATE MOFETIL (CELLCEPT) [Suspect]
     Dates: start: 20110118, end: 20110204
  2. SIROLIMUS [Suspect]
     Indication: KIDNEY TRANSPLANT REJECTION
     Dosage: 1 DOSE FORM, VARIABLE THROUGH LEVEL 5-10 UG/L
     Dates: start: 20101201, end: 20111101
  3. PREDNISONE [Suspect]
     Indication: KIDNEY TRANSPLANT REJECTION
     Dates: start: 20101004, end: 20111101
  4. CALCIUM CARBONATE [Concomitant]
     Dates: start: 20101022
  5. RANITIDINE HCL [Concomitant]
     Dates: start: 20101130
  6. MYCOPHENOLATE MOFETIL (CELLCEPT) [Suspect]
     Indication: KIDNEY TRANSPLANT REJECTION
     Dates: start: 20101005, end: 20101115
  7. MYCOPHENOLATE MOFETIL (CELLCEPT) [Suspect]
     Dates: start: 20110217, end: 20111207
  8. MABTHERA [Suspect]
     Indication: RENAL TRANSPLANT
  9. NIFEDIPINE [Concomitant]
     Dates: start: 20110306
  10. TACROLIMUS [Suspect]
     Indication: KIDNEY TRANSPLANT REJECTION
     Dosage: TIMES PER 750000 MG
     Route: 048
     Dates: start: 20101005, end: 20101201
  11. METOCLOPRAMIDE [Concomitant]
     Dates: start: 20080101
  12. ALFACALCIDOL [Concomitant]
     Dates: start: 20101030

REACTIONS (1)
  - PROGRESSIVE MULTIFOCAL LEUKOENCEPHALOPATHY [None]
